FAERS Safety Report 8272365-4 (Version None)
Quarter: 2012Q2

REPORT INFORMATION
  Report Type: 
  Country: None (occurrence: None)
  Receive Date: 20120410
  Receipt Date: 20120405
  Transmission Date: 20120825
  Serious: Yes (Hospitalization, Other)
  Sender: FDA-Public Use
  Company Number: US-PFIZER INC-2012086910

PATIENT
  Sex: Male
  Weight: 99.773 kg

DRUGS (7)
  1. LOVAZA [Suspect]
     Dosage: UNK
  2. HUMALOG [Concomitant]
     Indication: DIABETES MELLITUS
     Dosage: 14IU, 2X/DAY AND 12IU, DAILY DURING LUNCH TIME.
  3. TOPROL-XL [Concomitant]
     Indication: HYPERTENSION
     Dosage: 50 MG, DAILY
  4. LIPITOR [Suspect]
     Indication: BLOOD CHOLESTEROL INCREASED
     Dosage: 10 MG, DAILY
     Route: 048
  5. ASPIRIN [Suspect]
     Indication: ANTICOAGULANT THERAPY
     Dosage: 325 MG, UNK
  6. WARFARIN SODIUM [Suspect]
     Indication: ANTICOAGULANT THERAPY
     Dosage: HALF TO ONE TABLET OF 1 MG, DAILY
     Route: 048
  7. LANTUS [Concomitant]
     Indication: DIABETES MELLITUS
     Dosage: 45 IU, DAILY

REACTIONS (3)
  - SPINAL CORD DISORDER [None]
  - BLOOD DISORDER [None]
  - PARALYSIS [None]
